FAERS Safety Report 8430455-7 (Version None)
Quarter: 2012Q2

REPORT INFORMATION
  Report Type: 
  Country: None (occurrence: None)
  Receive Date: 20120606
  Receipt Date: 20120606
  Transmission Date: 20120825
  Serious: Yes (Hospitalization)
  Sender: FDA-Public Use
  Company Number: None

PATIENT
  Age: 62 Year
  Sex: Male
  Weight: 60.8 kg

DRUGS (1)
  1. DIAZEPAM [Suspect]
     Dosage: MG PO ; MG PO
     Route: 048
     Dates: start: 20120124, end: 20120429

REACTIONS (1)
  - MENTAL STATUS CHANGES [None]
